FAERS Safety Report 25262055 (Version 1)
Quarter: 2025Q2

REPORT INFORMATION
  Report Type: Spontaneous
  Country: CN (occurrence: CN)
  Receive Date: 20250502
  Receipt Date: 20250502
  Transmission Date: 20250717
  Serious: Yes (Hospitalization)
  Sender: NOVARTIS
  Company Number: CN-002147023-NVSC2025CN068849

PATIENT
  Age: 39 Year
  Sex: Female
  Weight: 58.4 kg

DRUGS (1)
  1. CARBAMAZEPINE [Suspect]
     Active Substance: CARBAMAZEPINE
     Indication: Muscle spasms
     Dosage: 200.000 MG, BID
     Route: 048
     Dates: start: 20250322, end: 20250403

REACTIONS (13)
  - Drug eruption [Recovering/Resolving]
  - Erythema [Unknown]
  - Pruritus [Recovering/Resolving]
  - Rash [Recovering/Resolving]
  - Rash maculo-papular [Unknown]
  - Papule [Unknown]
  - Pyrexia [Recovering/Resolving]
  - Temperature intolerance [Unknown]
  - Pain [Unknown]
  - Heart rate increased [Recovering/Resolving]
  - Conjunctival hyperaemia [Recovering/Resolving]
  - Mucosal ulceration [Recovering/Resolving]
  - Oral mucosa erosion [Unknown]

NARRATIVE: CASE EVENT DATE: 20250403
